FAERS Safety Report 8045943-5 (Version None)
Quarter: 2012Q1

REPORT INFORMATION
  Report Type: 
  Country: None (occurrence: None)
  Receive Date: 20120113
  Receipt Date: 20120104
  Transmission Date: 20120608
  Serious: Yes (Death)
  Sender: FDA-Public Use
  Company Number: US-GLAXOSMITHKLINE-B0774915A

PATIENT
  Age: 61 Year
  Sex: Female

DRUGS (5)
  1. FILGRASTIM [Concomitant]
     Route: 058
  2. CLOFARABINE [Suspect]
     Route: 042
  3. ALEMTUZUMAB [Suspect]
     Route: 042
  4. MELPHALAN HYDROCHLORIDE [Suspect]
     Route: 042
  5. TACROLIMUS [Concomitant]
     Route: 065

REACTIONS (1)
  - CARDIAC FAILURE [None]
